FAERS Safety Report 4924989-7 (Version None)
Quarter: 2006Q1

REPORT INFORMATION
  Report Type: 
  Country: None (occurrence: None)
  Receive Date: 20060222
  Receipt Date: 20060213
  Transmission Date: 20060701
  Serious: Yes (Life-Threatening)
  Sender: FDA-Public Use
  Company Number: SP-2006-002777

PATIENT
  Age: 57 Year
  Sex: Male

DRUGS (8)
  1. OLMESARTAN MEDOXOMIL [Suspect]
     Indication: HYPERTENSION
  2. COZAAR [Suspect]
     Indication: HYPERTENSION
  3. VERAPAMIL [Concomitant]
  4. DOXAZOSIN [Concomitant]
  5. ALLOPURINOL [Concomitant]
  6. SERETIDE ^ALLEN + HANBURYS LTD^ [Concomitant]
  7. VENTOLIN [Concomitant]
  8. FLIXONASE [Concomitant]

REACTIONS (2)
  - HYPOTENSION [None]
  - THERAPY NON-RESPONDER [None]
